FAERS Safety Report 8749402 (Version 2)
Quarter: 2013Q2

REPORT INFORMATION
  Report Type: Spontaneous
  Country: GR (occurrence: None)
  Receive Date: 20120806
  Receipt Date: 20130417
  Transmission Date: 20140414
  Serious: Yes (Life-Threatening, Other)
  Sender: FDA-Public Use
  Company Number: 2012032971

PATIENT
  Age: 15 Year
  Sex: Male

DRUGS (1)
  1. BERINERT [Suspect]
     Indication: HEREDITARY ANGIOEDEMA
     Dosage: 2-3 VIALS (500IU/VIAL) AFTER ONSET OF ATTACK AND ANOTHER 3 VIALS AFTER WORSENING.
     Route: 042
     Dates: start: 20120723, end: 20120724

REACTIONS (6)
  - DRUG INEFFECTIVE [None]
  - HEREDITARY ANGIOEDEMA [None]
  - LARYNGEAL OEDEMA [None]
  - DRUG ABUSE [None]
  - CONDITION AGGRAVATED [None]
  - Intentional drug misuse [None]
